FAERS Safety Report 24131393 (Version 1)
Quarter: 2024Q3

REPORT INFORMATION
  Report Type: Spontaneous
  Country: US (occurrence: US)
  Receive Date: 20240724
  Receipt Date: 20240724
  Transmission Date: 20241017
  Serious: Yes (Other)
  Sender: VITRUVIAS THERAPEUTICS
  Company Number: US-Vitruvias Therapeutics-2159500

PATIENT
  Age: 32 Year
  Sex: Female
  Weight: 101.82 kg

DRUGS (5)
  1. BUPROPION HYDROCHLORIDE XL [Suspect]
     Active Substance: BUPROPION HYDROCHLORIDE
     Indication: Depression
     Dates: start: 20220618
  2. ARIPIPRAZOLE [Suspect]
     Active Substance: ARIPIPRAZOLE
     Dates: start: 20220618
  3. ACETAMINOPHEN AND CODEINE [Suspect]
     Active Substance: ACETAMINOPHEN\CODEINE PHOSPHATE
     Dates: start: 20220618
  4. SUMATRIPTAN [Suspect]
     Active Substance: SUMATRIPTAN
     Dates: start: 20220618
  5. VENLAFAXINE [Suspect]
     Active Substance: VENLAFAXINE HYDROCHLORIDE
     Dates: start: 20220618

REACTIONS (2)
  - Gestational diabetes [Recovered/Resolved]
  - Pregnancy [Recovered/Resolved]

NARRATIVE: CASE EVENT DATE: 20221224
